FAERS Safety Report 11859531 (Version 1)
Quarter: 2015Q4

REPORT INFORMATION
  Report Type: Report from Study
  Country: CH (occurrence: CH)
  Receive Date: 20151221
  Receipt Date: 20151221
  Transmission Date: 20160305
  Serious: Yes (Other)
  Sender: FDA-Public Use
  Company Number: CH-ABBVIE-15P-151-1484397-00

PATIENT
  Age: 80 Year
  Sex: Male

DRUGS (1)
  1. DUODOPA [Suspect]
     Active Substance: CARBIDOPA\LEVODOPA
     Indication: PARKINSON^S DISEASE
     Dosage: MD 9ML, CD 2.7ML/H
     Route: 050
     Dates: start: 20150302

REACTIONS (7)
  - Fall [Recovered/Resolved]
  - Arrhythmia [Unknown]
  - Mental impairment [Unknown]
  - Bradycardia [Unknown]
  - Freezing phenomenon [Recovered/Resolved]
  - Cardiac disorder [Unknown]
  - Laceration [Recovering/Resolving]

NARRATIVE: CASE EVENT DATE: 20151009
